FAERS Safety Report 8757165 (Version 1)
Quarter: 2012Q4

REPORT INFORMATION
  Report Type: 
  Country: US (occurrence: US)
  Receive Date: 20120828
  Receipt Date: 20120828
  Transmission Date: 20130627
  Serious: Yes (Hospitalization)
  Sender: FDA-Public Use
  Company Number: US-BAYER-2012-087151

PATIENT
  Age: 24 Year
  Sex: Female
  Weight: 68.03 kg

DRUGS (4)
  1. YAZ [Suspect]
     Indication: ORAL CONTRACEPTION
  2. YASMIN [Suspect]
  3. TYLENOL PM [Concomitant]
  4. SKELAXIN [Concomitant]

REACTIONS (1)
  - Pulmonary embolism [Recovered/Resolved]
